FAERS Safety Report 5203857-X (Version None)
Quarter: 2007Q1

REPORT INFORMATION
  Report Type: 
  Country: None (occurrence: None)
  Receive Date: 20070105
  Receipt Date: 20070105
  Transmission Date: 20070707
  Serious: Yes (Hospitalization)
  Sender: FDA-Public Use
  Company Number: None

PATIENT
  Age: 45 Year
  Sex: Male
  Weight: 102 kg

DRUGS (13)
  1. MYCOPHENOLATE MOFETIL [Suspect]
     Indication: IMMUNOSUPPRESSION
     Dosage: 360 MG PO Q12H
     Route: 048
  2. TACROLIMUS [Concomitant]
  3. PREDNISONE TAB [Concomitant]
  4. BACTRIM [Concomitant]
  5. WARFARIN SODIUM [Concomitant]
  6. DOCUSATE [Concomitant]
  7. NYSTATIN [Concomitant]
  8. VALGANCICLOVIR HCL [Concomitant]
  9. RANITIDINE [Concomitant]
  10. METOPROLOL SUCCINATE [Concomitant]
  11. PRAVASTATIN [Concomitant]
  12. M.V.I. [Concomitant]
  13. INSULIN [Concomitant]

REACTIONS (4)
  - DIARRHOEA [None]
  - NAUSEA [None]
  - OEDEMA PERIPHERAL [None]
  - VOMITING [None]
